FAERS Safety Report 10082959 (Version 2)
Quarter: 2014Q2

REPORT INFORMATION
  Report Type: Spontaneous
  Country: CA (occurrence: CA)
  Receive Date: 20140417
  Receipt Date: 20140417
  Transmission Date: 20141212
  Serious: Yes (Other)
  Sender: FDA-Public Use
  Company Number: CA-ROCHE-GNE296206

PATIENT
  Sex: Female
  Weight: 56.06 kg

DRUGS (3)
  1. XOLAIR [Suspect]
     Indication: ASTHMA
     Dosage: 375 MG, QOW
     Route: 058
     Dates: start: 20080827
  2. XOLAIR [Suspect]
     Dosage: 375 MG, Q2W
     Route: 058
     Dates: start: 20091208
  3. XOLAIR [Suspect]
     Dosage: 375 MG, Q2W
     Route: 058
     Dates: start: 20100302

REACTIONS (5)
  - Fracture [Not Recovered/Not Resolved]
  - Blood pressure decreased [Unknown]
  - Neuralgia [Unknown]
  - Injection site pain [Unknown]
  - Overdose [Unknown]
